FAERS Safety Report 26063963 (Version 2)
Quarter: 2025Q4

REPORT INFORMATION
  Report Type: Report from Study
  Country: EG (occurrence: EG)
  Receive Date: 20251119
  Receipt Date: 20251128
  Transmission Date: 20260118
  Serious: Yes (Death, Hospitalization, Other)
  Sender: IPSEN BIOPHARMACEUTICALS, INC.
  Company Number: EG-SERVIER-S25016317

PATIENT
  Age: 52 Year
  Sex: Male
  Weight: 69 kg

DRUGS (2)
  1. ONIVYDE [Suspect]
     Active Substance: IRINOTECAN HYDROCHLORIDE
     Indication: Pancreatic carcinoma metastatic
     Dosage: 3 VIALS EVERY 2 WEEKS
  2. EUTHYROX [Concomitant]
     Active Substance: LEVOTHYROXINE SODIUM
     Indication: Hypothyroidism
     Dosage: UNK

REACTIONS (11)
  - Death [Fatal]
  - Immunodeficiency [Not Recovered/Not Resolved]
  - Oesophageal ulcer [Not Recovered/Not Resolved]
  - Feeding disorder [Not Recovered/Not Resolved]
  - General physical health deterioration [Not Recovered/Not Resolved]
  - Bedridden [Unknown]
  - Mouth ulceration [Not Recovered/Not Resolved]
  - Hypophagia [Not Recovered/Not Resolved]
  - Dizziness [Not Recovered/Not Resolved]
  - Hiccups [Not Recovered/Not Resolved]
  - Vomiting [Not Recovered/Not Resolved]

NARRATIVE: CASE EVENT DATE: 20251013
